FAERS Safety Report 7282279-4 (Version None)
Quarter: 2011Q1

REPORT INFORMATION
  Report Type: 
  Country: None (occurrence: None)
  Receive Date: 20110125
  Receipt Date: 20110119
  Transmission Date: 20110831
  Serious: Yes (Hospitalization)
  Sender: FDA-Public Use
  Company Number: CIP11000094

PATIENT
  Age: 88 Year
  Sex: Female

DRUGS (1)
  1. ACTONEL [Suspect]
     Dosage: 1 TIME PER WEEK, ORAL
     Route: 048

REACTIONS (4)
  - BRONCHITIS [None]
  - ANAEMIA [None]
  - PULMONARY OEDEMA [None]
  - PNEUMONIA [None]
